FAERS Safety Report 16958541 (Version 1)
Quarter: 2019Q4

REPORT INFORMATION
  Report Type: Spontaneous
  Country: DE (occurrence: DE)
  Receive Date: 20191024
  Receipt Date: 20191024
  Transmission Date: 20200122
  Serious: Yes (Hospitalization)
  Sender: FDA-Public Use
  Company Number: DE-PURDUE-GBR-2019-0071795

PATIENT
  Age: 8 Week
  Sex: Female
  Weight: 3.76 kg

DRUGS (2)
  1. VIGANTOLETTEN [Concomitant]
     Active Substance: CHOLECALCIFEROL
     Indication: PROPHYLAXIS
     Dosage: 500 IU, DAILY
     Route: 048
  2. THEOPHYLLINE [Suspect]
     Active Substance: THEOPHYLLINE ANHYDROUS
     Indication: PROPHYLAXIS AGAINST BRONCHOSPASM
     Dosage: 4 MG, DAILY
     Route: 048

REACTIONS (2)
  - Thrombocytopenia [Recovering/Resolving]
  - Heart rate increased [Recovering/Resolving]

NARRATIVE: CASE EVENT DATE: 20190630
